FAERS Safety Report 25361146 (Version 1)
Quarter: 2025Q2

REPORT INFORMATION
  Report Type: Spontaneous
  Country: US (occurrence: US)
  Receive Date: 20250527
  Receipt Date: 20250527
  Transmission Date: 20250716
  Serious: No
  Sender: MERCK SHARP & DOHME LLC
  Company Number: US-009507513-2283663

PATIENT
  Age: 24 Year
  Sex: Male

DRUGS (3)
  1. BELSOMRA [Suspect]
     Active Substance: SUVOREXANT
     Indication: Sleep disorder
     Dosage: 1 TABLET NIGHTLY
     Route: 048
     Dates: start: 20250506
  2. LITHIUM [Concomitant]
     Active Substance: LITHIUM
  3. SEROQUEL [Concomitant]
     Active Substance: QUETIAPINE FUMARATE

REACTIONS (3)
  - Muscle twitching [Not Recovered/Not Resolved]
  - Insomnia [Not Recovered/Not Resolved]
  - Drug effect less than expected [Not Recovered/Not Resolved]

NARRATIVE: CASE EVENT DATE: 20250506
